FAERS Safety Report 23734369 (Version 1)
Quarter: 2024Q2

REPORT INFORMATION
  Report Type: Report from Study
  Country: NL (occurrence: NL)
  Receive Date: 20240412
  Receipt Date: 20240412
  Transmission Date: 20240715
  Serious: Yes (Other)
  Sender: FDA-Public Use
  Company Number: NL-AstraZeneca-2024A083875

PATIENT
  Sex: Female
  Weight: 8 kg

DRUGS (1)
  1. SYNAGIS [Suspect]
     Active Substance: PALIVIZUMAB
     Indication: Product used for unknown indication
     Dosage: MONTHLY
     Route: 030
     Dates: start: 20231012

REACTIONS (3)
  - Pneumonia [Recovered/Resolved]
  - Illness [Recovered/Resolved]
  - Weight decreased [Not Recovered/Not Resolved]
